FAERS Safety Report 15408104 (Version 1)
Quarter: 2018Q3

REPORT INFORMATION
  Report Type: Spontaneous
  Country: IT (occurrence: IT)
  Receive Date: 20180920
  Receipt Date: 20180920
  Transmission Date: 20181010
  Serious: Yes (Hospitalization)
  Sender: FDA-Public Use
  Company Number: IT-JNJFOC-20180913350

PATIENT
  Age: 81 Year
  Sex: Male

DRUGS (1)
  1. TRAMADOL HYDROCHLORIDE. [Suspect]
     Active Substance: TRAMADOL HYDROCHLORIDE
     Indication: ARTHRALGIA
     Route: 065
     Dates: start: 20180707

REACTIONS (3)
  - Malaise [Recovered/Resolved]
  - Psychomotor hyperactivity [Recovered/Resolved]
  - Transient global amnesia [Recovered/Resolved]

NARRATIVE: CASE EVENT DATE: 20180707
